FAERS Safety Report 4467828-3 (Version None)
Quarter: 2004Q4

REPORT INFORMATION
  Report Type: 
  Country: None (occurrence: None)
  Receive Date: 20041007
  Receipt Date: 20040928
  Transmission Date: 20050328
  Serious: Yes (Life-Threatening)
  Sender: FDA-Public Use
  Company Number: US-JNJFOC-20040909726

PATIENT
  Age: 50 Year
  Sex: Male

DRUGS (5)
  1. DURAGESIC [Suspect]
     Route: 062
     Dates: start: 20040101
  2. DURAGESIC [Suspect]
     Route: 062
     Dates: start: 20040101
  3. DURAGESIC [Suspect]
     Route: 062
     Dates: start: 20040101
  4. PERCOCET [Concomitant]
  5. PERCOCET [Concomitant]

REACTIONS (1)
  - RESPIRATORY ARREST [None]
